FAERS Safety Report 8132381-X (Version None)
Quarter: 2012Q1

REPORT INFORMATION
  Report Type: 
  Country: None (occurrence: None)
  Receive Date: 20120213
  Receipt Date: 20120130
  Transmission Date: 20120608
  Serious: Yes (Hospitalization)
  Sender: FDA-Public Use
  Company Number: US-ELI_LILLY_AND_COMPANY-US201004002190

PATIENT
  Sex: Female
  Weight: 48.073 kg

DRUGS (16)
  1. PRAMIPEXOLE DIHYCHLLORIDE [Concomitant]
     Dosage: 0.125 MG, QD
     Route: 048
  2. TRIAMTERENE AND HYDROCHLOROTHIAZIDE [Concomitant]
     Indication: HYPERTENSION
     Dosage: UNK, QD
  3. PRAVASTATIN [Concomitant]
     Indication: HYPERLIPIDAEMIA
     Dosage: 20 MG, UNK
  4. COLACE [Concomitant]
     Dosage: 100 MG, BID
     Route: 048
  5. OMEPRAZOLE [Concomitant]
     Indication: GASTROOESOPHAGEAL REFLUX DISEASE
     Dosage: 20 MG, QD
  6. VALIUM [Concomitant]
     Dosage: 10 MG, QD
     Route: 048
  7. PRAVACHOL [Concomitant]
     Dosage: 20 MG, QD
     Route: 048
  8. MIRALAX [Concomitant]
     Indication: CONSTIPATION
     Dosage: 1 DF, PRN
     Route: 048
  9. FORTEO [Suspect]
     Indication: OSTEOPOROSIS
     Dosage: 20 UG, DAILY (1/D)
     Route: 058
  10. FORTEO [Suspect]
     Dosage: 20 UG, DAILY (1/D)
     Route: 058
  11. DIAZEPAM [Concomitant]
     Dosage: 10 MG, PRN
  12. PRILOSEC [Concomitant]
     Dosage: 20 MG, QD
     Route: 048
  13. FORTEO [Suspect]
     Dosage: 40 UG, QD
     Route: 058
  14. MAXZIDE [Concomitant]
     Dosage: 1 DF, QD
     Route: 048
  15. PERCOCET [Concomitant]
     Indication: PAIN
     Dosage: 1 DF, PRN
     Route: 048
  16. MIRAPEX [Concomitant]
     Indication: RESTLESS LEGS SYNDROME
     Dosage: 0.125 MG, EACH EVENING

REACTIONS (9)
  - ACCIDENT [None]
  - BACK INJURY [None]
  - UPPER LIMB FRACTURE [None]
  - HEADACHE [None]
  - HUMERUS FRACTURE [None]
  - PAIN [None]
  - FALL [None]
  - ANAEMIA [None]
  - VERTIGO [None]
